FAERS Safety Report 14713879 (Version 9)
Quarter: 2018Q3

REPORT INFORMATION
  Report Type: Report from Study
  Country: DE (occurrence: DE)
  Receive Date: 20180404
  Receipt Date: 20180928
  Transmission Date: 20181010
  Serious: Yes (Life-Threatening, Other)
  Sender: FDA-Public Use
  Company Number: PHHY2018DE058817

PATIENT
  Age: 69 Year
  Sex: Female
  Weight: 66 kg

DRUGS (7)
  1. KISQALI [Suspect]
     Active Substance: RIBOCICLIB
     Dosage: 200 MG, QD (1?0?0?0)
     Route: 048
     Dates: start: 20180412, end: 20180503
  2. KISQALI [Suspect]
     Active Substance: RIBOCICLIB
     Indication: BREAST CANCER METASTATIC
     Dosage: 600 MG, (21 DAYS TREATMENT, THEN 7 DAYS PAUSED)
     Route: 048
     Dates: start: 20180307, end: 20180327
  3. OMEPRAZOLE. [Concomitant]
     Active Substance: OMEPRAZOLE
     Indication: DYSPEPSIA
     Dosage: 20 MG, QD AS NEEDED (1?0?0?0)
     Route: 065
  4. PARACODIN [Concomitant]
     Active Substance: DIHYDROCODEINE BITARTRATE
     Indication: COUGH
     Dosage: 20 GTT, QID AS NEEDED (1?1?1?1)
     Route: 065
  5. KISQALI [Suspect]
     Active Substance: RIBOCICLIB
     Dosage: 200 MG, QD (1?0?0?0)  (21 DAYS TREATMENT, THEN 7 DAYS PAUSED)
     Route: 048
     Dates: start: 20180523, end: 20180612
  6. LETROZOLE 1A PHARMA [Suspect]
     Active Substance: LETROZOLE
     Indication: BREAST CANCER METASTATIC
     Dosage: 2.5 MG, QD (1?0?0?0)
     Route: 048
     Dates: start: 20180307, end: 20180612
  7. L?THYROXINE [Concomitant]
     Active Substance: LEVOTHYROXINE
     Indication: THYROID FUNCTION TEST ABNORMAL
     Dosage: 75 UG, QD (1?0?0?0)
     Route: 065

REACTIONS (13)
  - Leukopenia [Recovered/Resolved]
  - Aspartate aminotransferase increased [Recovering/Resolving]
  - Pancytopenia [Recovered/Resolved]
  - Alanine aminotransferase increased [Recovering/Resolving]
  - Pancytopenia [Recovered/Resolved]
  - Anaemia [Recovered/Resolved]
  - Blood bilirubin increased [Recovered/Resolved]
  - Epistaxis [Not Recovered/Not Resolved]
  - Transaminases increased [Recovering/Resolving]
  - Gamma-glutamyltransferase increased [Recovering/Resolving]
  - Blood lactate dehydrogenase increased [Recovering/Resolving]
  - Thrombocytopenia [Recovered/Resolved]
  - Blood alkaline phosphatase increased [Recovering/Resolving]

NARRATIVE: CASE EVENT DATE: 201803
